FAERS Safety Report 25543455 (Version 1)
Quarter: 2025Q3

REPORT INFORMATION
  Report Type: Spontaneous
  Country: US (occurrence: US)
  Receive Date: 20250711
  Receipt Date: 20250711
  Transmission Date: 20251021
  Serious: No
  Sender: PFIZER
  Company Number: US-PFIZER INC-202500126286

PATIENT
  Age: 51 Year
  Sex: Female

DRUGS (5)
  1. CIBINQO [Suspect]
     Active Substance: ABROCITINIB
     Dosage: 100 MG, 1X/DAY (ONCE DAILY)
  2. HYDROCORTISONE [Concomitant]
     Active Substance: HYDROCORTISONE
  3. MOMETASONE [Concomitant]
     Active Substance: MOMETASONE
  4. TRIAMCINOLONE [Concomitant]
     Active Substance: TRIAMCINOLONE
  5. VITAMIN B [Concomitant]
     Active Substance: VITAMIN B
     Indication: Dyspepsia

REACTIONS (3)
  - Toothache [Unknown]
  - Pruritus [Recovering/Resolving]
  - Condition aggravated [Recovering/Resolving]
